FAERS Safety Report 12983655 (Version 8)
Quarter: 2017Q1

REPORT INFORMATION
  Report Type: Spontaneous
  Country: PT (occurrence: PT)
  Receive Date: 20161129
  Receipt Date: 20170303
  Transmission Date: 20170428
  Serious: Yes (Disabling, Other)
  Sender: FDA-Public Use
  Company Number: PT-PFIZER INC-2016549581

PATIENT
  Age: 72 Year
  Sex: Female
  Weight: 62 kg

DRUGS (18)
  1. LYRICA [Suspect]
     Active Substance: PREGABALIN
     Dosage: 25 MG, 1X/DAY (AT NIGHT )
     Dates: start: 20161129
  2. LYRICA [Suspect]
     Active Substance: PREGABALIN
     Dosage: 25 MG, 2X/DAY
     Route: 048
     Dates: end: 20161213
  3. LYRICA [Suspect]
     Active Substance: PREGABALIN
     Dosage: 25 MG, DAILY (AT DINNER)
  4. PANTOC [Concomitant]
     Active Substance: PANTOPRAZOLE SODIUM
     Indication: PROPHYLAXIS AGAINST GASTROINTESTINAL ULCER
     Dosage: 40 MG, 1X/DAY
     Route: 048
  5. FLUTAIDE [Concomitant]
     Indication: PULMONARY FIBROSIS
     Dosage: 200 UG, 2X/DAY
     Route: 045
     Dates: start: 2006
  6. LYRICA [Suspect]
     Active Substance: PREGABALIN
     Dosage: 25 MG, 3X/DAY (AT BREAKFAST, LUNCH, AND DINNER)
  7. LASIX [Concomitant]
     Active Substance: FUROSEMIDE
     Indication: PULMONARY HYPERTENSION
     Dosage: 40 MG, 1X/DAY
     Route: 048
     Dates: start: 2015
  8. MAIZAR DISKUS [Concomitant]
     Indication: PULMONARY FIBROSIS
     Dosage: 2 DF, 2X/DAY
     Route: 055
     Dates: start: 2006
  9. CRESTOR [Concomitant]
     Active Substance: ROSUVASTATIN CALCIUM
     Indication: HEPATIC STEATOSIS
     Dosage: 5 MG, 1X/DAY
     Route: 048
     Dates: start: 2015
  10. PAROXETINA RATIOPHARM [Concomitant]
     Indication: ANXIETY
     Dosage: 20 MG, 1X/DAY
     Route: 048
     Dates: start: 2006
  11. LYRICA [Suspect]
     Active Substance: PREGABALIN
     Dosage: 100 MG, DAILY (25 MG AT BREAKFAST, 25 MG AT LUNCH AND 50 MG AT DINNER)
  12. ARCOXIA [Concomitant]
     Active Substance: ETORICOXIB
     Indication: SCIATICA
     Dosage: 90 MG, AS NEEDED (90 MG AS NEEDED 2XDAY)
     Route: 048
     Dates: start: 2014
  13. LYRICA [Suspect]
     Active Substance: PREGABALIN
     Indication: SCIATICA
     Dosage: 100 MG, 1X/DAY (AT NIGHT)
     Route: 048
     Dates: start: 20161123, end: 20161123
  14. LYRICA [Suspect]
     Active Substance: PREGABALIN
     Dosage: 25 MG, 2X/DAY (AT BREAKFAST AND AT DINNER)
  15. CINET [Concomitant]
     Indication: ABDOMINAL PAIN UPPER
     Dosage: 10 MG, 2X/DAY
     Route: 048
     Dates: start: 1995
  16. COSOPT [Concomitant]
     Active Substance: DORZOLAMIDE HYDROCHLORIDE\TIMOLOL MALEATE
     Indication: EYE DISORDER
     Dosage: 1 DF, 1X/DAY
     Route: 047
  17. LYRICA [Suspect]
     Active Substance: PREGABALIN
     Dosage: 100 MG, DAILY (AT DINNER)
  18. HERBESSER [Concomitant]
     Active Substance: DILTIAZEM HYDROCHLORIDE
     Indication: PULMONARY HYPERTENSION
     Dosage: 60 MG, 2X/DAY
     Route: 048
     Dates: start: 201603

REACTIONS (10)
  - Hallucination, auditory [Recovering/Resolving]
  - Sleep disorder [Recovered/Resolved]
  - Blood pressure increased [Recovered/Resolved]
  - Balance disorder [Recovering/Resolving]
  - Dizziness [Recovered/Resolved]
  - Vision blurred [Recovered/Resolved]
  - Tunnel vision [Recovered/Resolved]
  - Hallucination, visual [Recovered/Resolved]
  - Somnolence [Recovered/Resolved]
  - Heart rate increased [Recovered/Resolved]

NARRATIVE: CASE EVENT DATE: 20161123
